FAERS Safety Report 8069626-0 (Version None)
Quarter: 2012Q1

REPORT INFORMATION
  Report Type: 
  Country: None (occurrence: None)
  Receive Date: 20120125
  Receipt Date: 20120116
  Transmission Date: 20120608
  Serious: Yes (Disabling, Other)
  Sender: FDA-Public Use
  Company Number: NO-JNJFOC-20120103526

PATIENT
  Sex: Female

DRUGS (2)
  1. REMICADE [Suspect]
     Indication: CROHN'S DISEASE
     Route: 042
     Dates: start: 20120104, end: 20120104
  2. IMURAN [Concomitant]
     Indication: CROHN'S DISEASE
     Dosage: 75/100 MG
     Route: 065
     Dates: start: 20110101

REACTIONS (10)
  - ASTHENIA [None]
  - FEELING COLD [None]
  - HYPOAESTHESIA [None]
  - PAIN IN EXTREMITY [None]
  - INFUSION RELATED REACTION [None]
  - LIVEDO RETICULARIS [None]
  - HYPERAESTHESIA [None]
  - NEURALGIA [None]
  - PARAESTHESIA [None]
  - CHILLS [None]
